FAERS Safety Report 4827633-2 (Version None)
Quarter: 2005Q4

REPORT INFORMATION
  Report Type: 
  Country: None (occurrence: None)
  Receive Date: 20051110
  Receipt Date: 20051026
  Transmission Date: 20060501
  Serious: Yes (Hospitalization)
  Sender: FDA-Public Use
  Company Number: 2005-BP-18819RO

PATIENT
  Age: 81 Year
  Sex: Female

DRUGS (6)
  1. CITALOPRAM (CITALOPRAM) [Suspect]
     Indication: DEPRESSION
  2. AMITRIPTYLINE HCL [Suspect]
     Indication: DEPRESSION
  3. BISOPROLOL (BISOPROLOL) [Concomitant]
  4. RAMIPRIL [Concomitant]
  5. AMLODIPINE [Concomitant]
  6. MOXONIDINE (MOXONIDINE) [Concomitant]

REACTIONS (5)
  - FALL [None]
  - HAEMATOMA [None]
  - HEART RATE DECREASED [None]
  - INAPPROPRIATE ANTIDIURETIC HORMONE SECRETION [None]
  - THERAPY NON-RESPONDER [None]
